FAERS Safety Report 23494142 (Version 1)
Quarter: 2024Q1

REPORT INFORMATION
  Report Type: Spontaneous
  Country: IN (occurrence: IN)
  Receive Date: 20240207
  Receipt Date: 20240207
  Transmission Date: 20240410
  Serious: Yes (Other)
  Sender: FDA-Public Use
  Company Number: IN-PFIZER INC-PV202300194806

PATIENT
  Age: 54 Year
  Sex: Female

DRUGS (1)
  1. PALBOCICLIB [Suspect]
     Active Substance: PALBOCICLIB
     Dosage: 125 MG, 1X/DAY, 21 DAYS AND 1 WEEK OFF
     Route: 048
     Dates: start: 202307

REACTIONS (3)
  - Blood pressure systolic increased [Unknown]
  - Blood potassium increased [Unknown]
  - Mean arterial pressure increased [Unknown]
